FAERS Safety Report 6162824-2 (Version None)
Quarter: 2009Q2

REPORT INFORMATION
  Report Type: 
  Country: None (occurrence: None)
  Receive Date: 20090421
  Receipt Date: 20080819
  Transmission Date: 20091009
  Serious: No
  Sender: FDA-Public Use
  Company Number: US-ASTRAZENECA-2008UW17039

PATIENT
  Age: 65 Year
  Sex: Female

DRUGS (1)
  1. TOPROL-XL [Suspect]
     Dosage: 25 MG
     Route: 048
     Dates: start: 20070101

REACTIONS (1)
  - COELIAC DISEASE [None]
